FAERS Safety Report 14540597 (Version 1)
Quarter: 2018Q1

REPORT INFORMATION
  Report Type: Spontaneous
  Country: DE (occurrence: DE)
  Receive Date: 20180216
  Receipt Date: 20180216
  Transmission Date: 20180509
  Serious: Yes (Hospitalization, Other)
  Sender: FDA-Public Use
  Company Number: DE-OTSUKA-KJ20070430

PATIENT

DRUGS (3)
  1. PROMETHAZINE [Suspect]
     Active Substance: PROMETHAZINE\PROMETHAZINE HYDROCHLORIDE
     Route: 048
  2. ABILIFY [Suspect]
     Active Substance: ARIPIPRAZOLE
     Route: 048
  3. MELPERONE HCL [Suspect]
     Active Substance: MELPERONE HYDROCHLORIDE
     Route: 048

REACTIONS (4)
  - Overdose [Unknown]
  - Tachycardia [Unknown]
  - Respiratory depression [Unknown]
  - Suicide attempt [Unknown]
